FAERS Safety Report 21499651 (Version 2)
Quarter: 2022Q4

REPORT INFORMATION
  Report Type: Spontaneous
  Country: JP (occurrence: JP)
  Receive Date: 20221024
  Receipt Date: 20221110
  Transmission Date: 20230112
  Serious: Yes (Life-Threatening)
  Sender: FDA-Public Use
  Company Number: JP-MYOVANT SCIENCES GMBH-2022MYSCI1000459

PATIENT
  Age: 44 Year
  Sex: Female

DRUGS (5)
  1. RELUGOLIX [Suspect]
     Active Substance: RELUGOLIX
     Indication: Uterine leiomyoma
     Dosage: 40 MILLIGRAM, QD
     Route: 048
     Dates: start: 20220404, end: 20220711
  2. RELUGOLIX [Suspect]
     Active Substance: RELUGOLIX
     Indication: Uterine polyp
  3. RELUGOLIX [Suspect]
     Active Substance: RELUGOLIX
     Indication: Heavy menstrual bleeding
  4. RELUGOLIX [Suspect]
     Active Substance: RELUGOLIX
     Indication: Dysmenorrhoea
  5. FERRIC CITRATE ANHYDROUS [Concomitant]
     Active Substance: FERRIC CITRATE ANHYDROUS
     Indication: Anaemia
     Dosage: 1000 MILLIGRAM, QD
     Route: 048
     Dates: start: 20210716, end: 20210804

REACTIONS (2)
  - Myocarditis [Recovered/Resolved]
  - Cardiogenic shock [Recovered/Resolved]

NARRATIVE: CASE EVENT DATE: 20220708
